FAERS Safety Report 20108586 (Version 4)
Quarter: 2022Q1

REPORT INFORMATION
  Report Type: Report from Study
  Country: US (occurrence: US)
  Receive Date: 20211124
  Receipt Date: 20220309
  Transmission Date: 20220423
  Serious: Yes (Other)
  Sender: FDA-Public Use
  Company Number: US-ABBVIE-21K-163-4165097-00

PATIENT
  Sex: Female

DRUGS (3)
  1. IMBRUVICA [Suspect]
     Active Substance: IBRUTINIB
     Indication: Chronic lymphocytic leukaemia
     Route: 048
     Dates: start: 20210516
  2. VENCLEXTA [Suspect]
     Active Substance: VENETOCLAX
     Indication: Chronic lymphocytic leukaemia
     Route: 048
  3. PFIZER-BIONTECH COVID-19 VACCINE [Concomitant]
     Active Substance: TOZINAMERAN
     Indication: COVID-19 immunisation
     Route: 030

REACTIONS (11)
  - Traumatic haemorrhage [Unknown]
  - Injury [Unknown]
  - Bleeding time prolonged [Recovered/Resolved]
  - Immunoglobulins decreased [Unknown]
  - Laboratory test abnormal [Recovered/Resolved]
  - Muscle spasms [Unknown]
  - Fatigue [Unknown]
  - Blood pressure increased [Unknown]
  - Muscle spasms [Not Recovered/Not Resolved]
  - Vision blurred [Unknown]
  - Therapeutic product effect decreased [Unknown]

NARRATIVE: CASE EVENT DATE: 20210101
